FAERS Safety Report 15949494 (Version 1)
Quarter: 2019Q1

REPORT INFORMATION
  Report Type: Spontaneous
  Country: US (occurrence: US)
  Receive Date: 20190211
  Receipt Date: 20190211
  Transmission Date: 20190417
  Serious: No
  Sender: FDA-Public Use
  Company Number: US-PERRIGO-18US014289

PATIENT
  Age: 1 Year
  Sex: Male
  Weight: 13.15 kg

DRUGS (6)
  1. IBUPROFEN. [Suspect]
     Active Substance: IBUPROFEN
     Indication: NASOPHARYNGITIS
     Dosage: 100 MG, EVERY 8 TO 10 HOURS
     Route: 048
     Dates: start: 201811, end: 20181206
  2. DULERA [Concomitant]
     Active Substance: FORMOTEROL FUMARATE DIHYDRATE\MOMETASONE FUROATE
     Indication: ASTHMA
     Dosage: UNK
     Route: 065
     Dates: start: 201804
  3. ALBUTEROL                          /00139501/ [Concomitant]
     Active Substance: ALBUTEROL
     Indication: ASTHMA
     Dosage: PRN
     Route: 055
     Dates: start: 201804
  4. LORATADINE. [Concomitant]
     Active Substance: LORATADINE
     Indication: ASTHMA
     Dosage: UNK
     Route: 048
     Dates: start: 201804
  5. MONTELUKAST [Concomitant]
     Active Substance: MONTELUKAST SODIUM
     Indication: ASTHMA
     Dosage: UNK
     Route: 065
     Dates: start: 201804
  6. LORATADINE. [Concomitant]
     Active Substance: LORATADINE
     Indication: PERENNIAL ALLERGY

REACTIONS (3)
  - Vomiting [Not Recovered/Not Resolved]
  - Diarrhoea [Not Recovered/Not Resolved]
  - Incorrect product administration duration [Recovered/Resolved]

NARRATIVE: CASE EVENT DATE: 201811
